FAERS Safety Report 22052478 (Version 2)
Quarter: 2023Q1

REPORT INFORMATION
  Report Type: Report from Study
  Country: CL (occurrence: CL)
  Receive Date: 20230302
  Receipt Date: 20230313
  Transmission Date: 20230418
  Serious: Yes (Death)
  Sender: FDA-Public Use
  Company Number: CL-BAYER-2023A025553

PATIENT
  Sex: Female

DRUGS (1)
  1. VENTAVIS [Suspect]
     Active Substance: ILOPROST
     Indication: Pulmonary hypertension
     Route: 055
     Dates: start: 20181218

REACTIONS (1)
  - Death [Fatal]
